FAERS Safety Report 4842289-0 (Version None)
Quarter: 2005Q4

REPORT INFORMATION
  Report Type: 
  Country: None (occurrence: None)
  Receive Date: 20051129
  Receipt Date: 20051118
  Transmission Date: 20060501
  Serious: Yes (Death)
  Sender: FDA-Public Use
  Company Number: 200513975GDS

PATIENT
  Age: 72 Year
  Sex: Female

DRUGS (23)
  1. AVELOX [Suspect]
     Dosage: 400 MG, QD, ORAL
     Route: 048
  2. COUMADIN [Suspect]
     Dosage: 2 MG, QD, ORAL
     Route: 048
  3. ACETAMINOPHEN [Concomitant]
  4. AMINOPHYLLINE [Concomitant]
  5. BUDESONIDE [Concomitant]
  6. CANESTEN-HC [Concomitant]
  7. CLOXACILLIN [Concomitant]
  8. DOCUSATE SODIUM [Concomitant]
  9. FUROSEMIDE [Concomitant]
  10. IPRATROPIUM BROMIDE [Concomitant]
  11. LOPERAMIDE [Concomitant]
  12. LORAZEPAM [Concomitant]
  13. MAGNESIUM GLUCONATE [Concomitant]
  14. METHYLDOPA [Concomitant]
  15. MORPHINE SULFATE [Concomitant]
  16. NITROFURANTOIN [Concomitant]
  17. NITROGLYCERIN [Concomitant]
  18. PAROXETINE HCL [Concomitant]
  19. POTASSIUM CHLORIDE [Concomitant]
  20. PREDNISONE [Concomitant]
  21. PULMICORT [Concomitant]
  22. SALBUTAMOL [Concomitant]
  23. SPIRONOLACTONE [Concomitant]

REACTIONS (2)
  - DRUG INTERACTION [None]
  - PROTHROMBIN TIME PROLONGED [None]
